FAERS Safety Report 25267744 (Version 1)
Quarter: 2025Q2

REPORT INFORMATION
  Report Type: Spontaneous
  Country: US (occurrence: None)
  Receive Date: 20250501
  Receipt Date: 20250501
  Transmission Date: 20250717
  Serious: Yes (Other)
  Sender: FDA-CTU
  Company Number: None

PATIENT
  Age: 32 Year
  Sex: Female
  Weight: 60.33 kg

DRUGS (4)
  1. CORTICOTROPIN [Suspect]
     Active Substance: CORTICOTROPIN
     Indication: Optic neuritis
     Dosage: 80 IU TWICE A WEEK SUBCUTANEOUS  ?
     Route: 058
  2. TYSABRI [Concomitant]
     Active Substance: NATALIZUMAB
  3. Vaccines/inmunoterapy [Concomitant]
  4. LORATADINE [Concomitant]
     Active Substance: LORATADINE

REACTIONS (3)
  - Injection site reaction [None]
  - Injection site pain [None]
  - Fatigue [None]

NARRATIVE: CASE EVENT DATE: 20250501
